FAERS Safety Report 23509156 (Version 1)
Quarter: 2024Q1

REPORT INFORMATION
  Report Type: Report from Study
  Country: IL (occurrence: IL)
  Receive Date: 20240210
  Receipt Date: 20240210
  Transmission Date: 20240409
  Serious: Yes (Other)
  Sender: FDA-Public Use
  Company Number: IL-ABBVIE-5625578

PATIENT
  Age: 57 Year
  Sex: Male

DRUGS (1)
  1. SKYRIZI [Suspect]
     Active Substance: RISANKIZUMAB-RZAA
     Indication: Psoriasis
     Dosage: FORM STRENGTH 150 MILLIGRAMS
     Route: 058
     Dates: start: 20210805, end: 20230501

REACTIONS (1)
  - Lung cancer metastatic [Unknown]

NARRATIVE: CASE EVENT DATE: 20230401
